FAERS Safety Report 5520692-3 (Version None)
Quarter: 2007Q4

REPORT INFORMATION
  Report Type: 
  Country: None (occurrence: None)
  Receive Date: 20071115
  Receipt Date: 20071115
  Transmission Date: 20080405
  Serious: Yes (Hospitalization)
  Sender: FDA-Public Use
  Company Number: None

PATIENT
  Sex: Female
  Weight: 92.2 kg

DRUGS (2)
  1. CYTARABINE [Suspect]
     Dosage: 30080 MG
     Dates: start: 20071026, end: 20071030
  2. ETOPOSIDE [Suspect]
     Dosage: 5352 MG
     Dates: end: 20071030

REACTIONS (1)
  - SEPTIC SHOCK [None]
